FAERS Safety Report 23868780 (Version 1)
Quarter: 2024Q2

REPORT INFORMATION
  Report Type: Spontaneous
  Country: CA (occurrence: CA)
  Receive Date: 20240517
  Receipt Date: 20240517
  Transmission Date: 20240716
  Serious: Yes (Death, Other)
  Sender: FDA-Public Use
  Company Number: CA-PFIZER INC-202201160874

PATIENT
  Age: 73 Year
  Sex: Female
  Weight: 70 kg

DRUGS (5)
  1. RUXIENCE [Suspect]
     Active Substance: RITUXIMAB-PVVR
     Indication: Anti-neutrophil cytoplasmic antibody positive vasculitis
     Dosage: 500 MG, EVERY 6 MONTH
     Route: 042
     Dates: start: 20210921, end: 20220321
  2. RUXIENCE [Suspect]
     Active Substance: RITUXIMAB-PVVR
     Dosage: 500 MG, SINGLE EVERY 6 MONTHS (500MG X 1)
     Route: 042
     Dates: start: 20221013, end: 20221013
  3. RUXIENCE [Suspect]
     Active Substance: RITUXIMAB-PVVR
     Dosage: 500 MG, SINGLE EVERY 6 MONTHS
     Route: 042
     Dates: start: 20221013, end: 20221013
  4. RUXIENCE [Suspect]
     Active Substance: RITUXIMAB-PVVR
     Dosage: 500 MG EVERY 6 MONTHS
     Route: 042
     Dates: start: 20230505, end: 20230505
  5. RUXIENCE [Suspect]
     Active Substance: RITUXIMAB-PVVR
     Dosage: 500 MG EVERY 6 MONTHS  37 WEEKS (8 MONTHS, 14 DAYS)
     Route: 042
     Dates: start: 20240119

REACTIONS (10)
  - Death [Fatal]
  - Respiratory tract infection [Recovered/Resolved]
  - Laboratory test abnormal [Recovering/Resolving]
  - Nasopharyngitis [Not Recovered/Not Resolved]
  - Dyspnoea [Not Recovered/Not Resolved]
  - Illness [Not Recovered/Not Resolved]
  - Cough [Not Recovered/Not Resolved]
  - Productive cough [Not Recovered/Not Resolved]
  - Sinus pain [Not Recovered/Not Resolved]
  - Off label use [Unknown]

NARRATIVE: CASE EVENT DATE: 20210921
